FAERS Safety Report 9157714 (Version 1)
Quarter: 2013Q1

REPORT INFORMATION
  Report Type: Spontaneous
  Country: GB (occurrence: None)
  Receive Date: 20130213
  Receipt Date: 20130213
  Transmission Date: 20140127
  Serious: Yes (Other)
  Sender: FDA-Public Use
  Company Number: AUR-APL-2013-01351

PATIENT
  Age: 41 Year
  Sex: Female
  Weight: 86.2 kg

DRUGS (3)
  1. CLARITHROMYCIN (CLARITHROMYCIN) [Suspect]
     Indication: PRODUCT USED FOR UNKNOWN INDICATION
     Dates: start: 20130118
  2. CONJUGATED ESTROGEN/MEDROXYPROGESTERONE ACETA(ESTROGEN W/MEDROXYPROGESTERON) [Concomitant]
  3. VENTOLIN [Concomitant]

REACTIONS (2)
  - Vision blurred [None]
  - Confusional state [None]
